FAERS Safety Report 9714821 (Version 1)
Quarter: 2013Q4

REPORT INFORMATION
  Report Type: Spontaneous
  Country: US (occurrence: US)
  Receive Date: 20131126
  Receipt Date: 20131126
  Transmission Date: 20140711
  Serious: Yes (Hospitalization)
  Sender: FDA-Public Use
  Company Number: US-B.I. PHARMACEUTICALS,INC./RIDGEFIELD-2013-BI-38764BP

PATIENT
  Age: 66 Year
  Sex: Male
  Weight: 86 kg

DRUGS (16)
  1. PRADAXA [Suspect]
     Indication: ATRIAL FIBRILLATION
     Dosage: 300 MG
     Route: 048
     Dates: start: 2011
  2. METOPROLOL [Concomitant]
     Indication: HYPERTENSION
     Dosage: 10 MG
     Route: 048
  3. CAPTOPRIL [Concomitant]
     Indication: RENAL IMPAIRMENT
     Dosage: 100 MG
     Route: 048
  4. CAPTOPRIL [Concomitant]
     Indication: HYPERTENSION
  5. VITAMIN B COMPLEX [Concomitant]
     Dosage: 1 ANZ
     Route: 048
  6. OMEGA 3 [Concomitant]
     Indication: CARDIOVASCULAR EVENT PROPHYLAXIS
     Dosage: 1 ANZ
     Route: 048
  7. BENADRYL [Concomitant]
  8. SIMVASTATIN [Concomitant]
     Indication: HEPATIC FUNCTION ABNORMAL
     Dosage: 25 MG
     Route: 048
  9. THYROXINE [Concomitant]
     Indication: HYPOTHYROIDISM
     Dosage: 0.25 MCG
     Route: 048
  10. ANDROGEL [Concomitant]
     Indication: BLOOD TESTOSTERONE INCREASED
     Dosage: 12.5 MG
     Route: 061
  11. ANDROGEL [Concomitant]
     Indication: LIBIDO DISORDER
  12. AREDS [Concomitant]
     Indication: SUPPLEMENTATION THERAPY
     Dosage: 1 ANZ
     Route: 048
  13. CYMBALTA [Concomitant]
     Indication: DEPRESSION
     Dosage: 60 MG
     Route: 048
  14. CYMBALTA [Concomitant]
     Indication: PAIN
  15. MULTIVITAMINS [Concomitant]
     Dosage: 1 ANZ
     Route: 048
  16. CLARITIN [Concomitant]

REACTIONS (5)
  - Hip fracture [Not Recovered/Not Resolved]
  - Intestinal obstruction [Recovered/Resolved]
  - Fall [Recovered/Resolved]
  - Infection [Recovered/Resolved]
  - Body height decreased [Not Recovered/Not Resolved]
